FAERS Safety Report 8553022-3 (Version None)
Quarter: 2012Q3

REPORT INFORMATION
  Report Type: 
  Country: None (occurrence: None)
  Receive Date: 20120731
  Receipt Date: 20120719
  Transmission Date: 20120928
  Serious: Yes (Hospitalization)
  Sender: FDA-Public Use
  Company Number: FR-NAPPMUNDI-GBR-2012-0011050

PATIENT
  Sex: Male

DRUGS (11)
  1. ALIMTA [Suspect]
     Indication: LUNG NEOPLASM MALIGNANT
     Dosage: 900 MG, DAILY
     Route: 042
     Dates: start: 20120305, end: 20120515
  2. CISPLATIN [Suspect]
     Dosage: 140 MG, UNK
     Route: 042
     Dates: start: 20120305, end: 20120515
  3. LYRICA [Suspect]
     Dosage: 100 MG, BID
  4. METHYLPREDNISOLONE [Suspect]
     Dosage: 120 MG, UNK
     Route: 042
     Dates: start: 20120305, end: 20120315
  5. OXYCODONE HYDROCHLORIDE [Suspect]
     Indication: PRODUCT USED FOR UNKNOWN INDICATION
     Dosage: 5 MG, PRN
     Route: 048
  6. ONDANSETRON [Suspect]
     Dosage: 8 MG, UNK
     Route: 042
     Dates: start: 20120303, end: 20120315
  7. FOLIC ACID [Suspect]
     Dosage: 0.4 MG, DAILY
     Route: 048
     Dates: start: 20120301
  8. ZOMETA [Suspect]
     Dosage: UNK
     Route: 042
     Dates: start: 20120515, end: 20120515
  9. EMEND [Suspect]
     Dosage: 125 MG, UNK
     Route: 048
     Dates: start: 20120303, end: 20120315
  10. OXYCONTIN [Suspect]
     Indication: PRODUCT USED FOR UNKNOWN INDICATION
     Dosage: 90 MG, DAILY
     Route: 048
  11. DEXAMETHASONE [Suspect]
     Dosage: 4 MG, BID
     Route: 048
     Dates: start: 20120304, end: 20120516

REACTIONS (2)
  - HAEMOLYTIC ANAEMIA [None]
  - DYSPNOEA [None]
